FAERS Safety Report 22273866 (Version 2)
Quarter: 2023Q2

REPORT INFORMATION
  Report Type: Other
  Country: US (occurrence: None)
  Receive Date: 20230502
  Receipt Date: 20230628
  Transmission Date: 20230722
  Serious: Yes (Other)
  Sender: FDA-Public Use
  Company Number: US-ROCHE-3337960

PATIENT
  Age: 80 Year
  Sex: Male

DRUGS (1)
  1. ERIVEDGE [Suspect]
     Active Substance: VISMODEGIB
     Indication: Basal cell carcinoma
     Dosage: TAKE 1 CAPSULE BY MOUTH DAILY WITH OR WITHOUT FOOD. SWALLOW WHOLE - DO NOT OPEN OR CRUSH.
     Route: 048

REACTIONS (1)
  - Neoplasm malignant [Unknown]
